FAERS Safety Report 5619840-6 (Version None)
Quarter: 2008Q1

REPORT INFORMATION
  Report Type: 
  Country: None (occurrence: None)
  Receive Date: 20080208
  Receipt Date: 20080206
  Transmission Date: 20080703
  Serious: Yes (Hospitalization)
  Sender: FDA-Public Use
  Company Number: US-ASTRAZENECA-2007UW07376

PATIENT
  Age: 26355 Day
  Sex: Male

DRUGS (13)
  1. CLOPIDOGREL [Suspect]
     Indication: ACUTE CORONARY SYNDROME
     Route: 048
     Dates: start: 20070312
  2. NOVOLOG [Concomitant]
     Dates: start: 20070311, end: 20070313
  3. TRANDOLAPRIL [Concomitant]
  4. MORPHINE [Concomitant]
     Dates: start: 20070311, end: 20070312
  5. HYDROCODONE BITARTRATE [Concomitant]
     Dates: start: 20070311, end: 20070313
  6. ACTOS [Concomitant]
  7. SIMVASTATIN [Concomitant]
  8. GLIPIZIDE [Concomitant]
  9. TOPROL-XL [Concomitant]
     Route: 048
  10. AVALIDE [Concomitant]
  11. CLOPIDOGREL [Concomitant]
     Dates: start: 20070309, end: 20070312
  12. ASPIRIN [Concomitant]
  13. HEPARIN [Concomitant]
     Dates: start: 20070311, end: 20070312

REACTIONS (1)
  - ANGINA PECTORIS [None]
